FAERS Safety Report 19051010 (Version 2)
Quarter: 2021Q2

REPORT INFORMATION
  Report Type: Spontaneous
  Country: US (occurrence: US)
  Receive Date: 20210323
  Receipt Date: 20210408
  Transmission Date: 20210717
  Serious: No
  Sender: FDA-Public Use
  Company Number: US-IGSA-BIG0013752

PATIENT
  Age: 7 Year
  Sex: Male
  Weight: 25.7 kg

DRUGS (12)
  1. DIPHENHYDRAMINE. [Concomitant]
     Active Substance: DIPHENHYDRAMINE
     Indication: PREMEDICATION
     Dosage: 22 MILLIGRAM, QD
     Route: 042
     Dates: start: 20210129, end: 20210129
  2. ENALAPRIL [Concomitant]
     Active Substance: ENALAPRIL
  3. GAMUNEX?C [Suspect]
     Active Substance: HUMAN IMMUNOGLOBULIN G
     Indication: KIDNEY TRANSPLANT REJECTION
     Dosage: 20 GRAM, TOTAL
     Route: 042
     Dates: start: 20210129, end: 20210129
  4. PREDNISONE. [Concomitant]
     Active Substance: PREDNISONE
  5. LOSARTAN. [Concomitant]
     Active Substance: LOSARTAN
  6. POLYETHYLENE GLYCOL [MACROGOL] [Concomitant]
     Active Substance: POLYETHYLENE GLYCOLS
  7. ACETAMINOPHEN. [Concomitant]
     Active Substance: ACETAMINOPHEN
     Indication: PREMEDICATION
     Dosage: 273 MILLIGRAM, QD
     Route: 048
     Dates: start: 20210129, end: 20210129
  8. VALGANCICLOVIR. [Concomitant]
     Active Substance: VALGANCICLOVIR
  9. GAMUNEX?C [Suspect]
     Active Substance: HUMAN IMMUNOGLOBULIN G
     Dosage: 20 GRAM, Q.4WK.
     Route: 042
     Dates: start: 201909
  10. TACROLIMUS. [Concomitant]
     Active Substance: TACROLIMUS
  11. ATOVAQUONE. [Concomitant]
     Active Substance: ATOVAQUONE
  12. SIROLIMUS. [Concomitant]
     Active Substance: SIROLIMUS

REACTIONS (2)
  - Urticaria [Recovered/Resolved]
  - Pruritus [Recovered/Resolved]

NARRATIVE: CASE EVENT DATE: 20210129
